FAERS Safety Report 20280801 (Version 1)
Quarter: 2022Q1

REPORT INFORMATION
  Report Type: Spontaneous
  Country: US (occurrence: None)
  Receive Date: 20220102
  Receipt Date: 20220102
  Transmission Date: 20220423
  Serious: Yes (Life-Threatening, Disabling)
  Sender: FDA-Public Use
  Company Number: None

PATIENT
  Age: 24 Year
  Sex: Female
  Weight: 118.8 kg

DRUGS (3)
  1. MONTELUKAST [Suspect]
     Active Substance: MONTELUKAST SODIUM
     Indication: Hypersensitivity
     Dosage: FREQUENCY : AT BEDTIME;?
     Route: 048
  2. MONTELUKAST [Suspect]
     Active Substance: MONTELUKAST SODIUM
     Indication: Asthma
  3. CETIRIZINE [Suspect]
     Active Substance: CETIRIZINE HYDROCHLORIDE
     Indication: Hypersensitivity
     Dosage: FREQUENCY : AT BEDTIME;?
     Route: 048

REACTIONS (9)
  - Mental status changes [None]
  - Fatigue [None]
  - Somnolence [None]
  - Narcolepsy [None]
  - Hypersomnia [None]
  - Hypersomnia-bulimia syndrome [None]
  - Suicidal ideation [None]
  - Depression [None]
  - Loss of personal independence in daily activities [None]

NARRATIVE: CASE EVENT DATE: 20211223
